FAERS Safety Report 4964917-1 (Version None)
Quarter: 2006Q1

REPORT INFORMATION
  Report Type: 
  Country: None (occurrence: None)
  Receive Date: 20060130
  Receipt Date: 20051122
  Transmission Date: 20060701
  Serious: Yes (Hospitalization)
  Sender: FDA-Public Use
  Company Number: 143828USA

PATIENT
  Age: 49 Year
  Sex: Female
  Weight: 72.5755 kg

DRUGS (7)
  1. COPAXONE [Suspect]
     Indication: MULTIPLE SCLEROSIS
     Dosage: MILLIGRAM QD SUBCUTANEOUS
     Route: 058
     Dates: start: 20041101, end: 20051101
  2. ZOCOR [Concomitant]
  3. NEXIUM [Concomitant]
  4. LAMICTAL [Concomitant]
  5. BENICAR HCT [Concomitant]
  6. COREG [Concomitant]
  7. OXYTROL [Concomitant]

REACTIONS (10)
  - ABDOMINAL PAIN [None]
  - BACK PAIN [None]
  - CHEST DISCOMFORT [None]
  - DYSPNOEA [None]
  - HYPERHIDROSIS [None]
  - HYPOAESTHESIA [None]
  - HYPOAESTHESIA ORAL [None]
  - NAUSEA [None]
  - PANCREATITIS ACUTE [None]
  - VOMITING [None]
